FAERS Safety Report 21514879 (Version 1)
Quarter: 2022Q4

REPORT INFORMATION
  Report Type: Spontaneous
  Country: US (occurrence: US)
  Receive Date: 20221027
  Receipt Date: 20221027
  Transmission Date: 20230112
  Serious: Yes (Other)
  Sender: FDA-Public Use
  Company Number: US-PERRIGO-22US013875

PATIENT
  Age: 35 Year
  Sex: Male

DRUGS (3)
  1. NICOTINE POLACRILEX [Suspect]
     Active Substance: NICOTINE
     Indication: Nicotine dependence
     Dosage: UNK
     Route: 065
  2. NICOTINE [Suspect]
     Active Substance: NICOTINE
     Indication: Nicotine dependence
     Dosage: CIGARETTES
     Route: 055
  3. NICOTINE TRANSDERMAL SYSTEM [Suspect]
     Active Substance: NICOTINE
     Indication: Nicotine dependence
     Dosage: PATCHES
     Route: 062

REACTIONS (1)
  - Generalised bullous fixed drug eruption [Recovered/Resolved]
